FAERS Safety Report 6761795-5 (Version None)
Quarter: 2010Q2

REPORT INFORMATION
  Report Type: 
  Country: None (occurrence: None)
  Receive Date: 20100609
  Receipt Date: 20100603
  Transmission Date: 20101027
  Serious: Yes (Hospitalization, Other)
  Sender: FDA-Public Use
  Company Number: US-BAYER-201021943NA

PATIENT
  Sex: Female

DRUGS (5)
  1. BETASERON [Suspect]
     Indication: RELAPSING-REMITTING MULTIPLE SCLEROSIS
     Dosage: TOTAL DAILY DOSE: 8 MIU
     Route: 058
     Dates: start: 20020101
  2. PROVIGIL [Concomitant]
  3. MECLIZINE [Concomitant]
  4. RESTORIL [Concomitant]
  5. SEIZURE MEDICATION [Concomitant]
     Indication: CONVULSION

REACTIONS (5)
  - INJECTION SITE INDURATION [None]
  - INJECTION SITE REACTION [None]
  - INJECTION SITE SWELLING [None]
  - MULTIPLE SCLEROSIS RELAPSE [None]
  - SYNCOPE [None]
